FAERS Safety Report 18340281 (Version 1)
Quarter: 2020Q4

REPORT INFORMATION
  Report Type: Spontaneous
  Country: US (occurrence: US)
  Receive Date: 20201002
  Receipt Date: 20201002
  Transmission Date: 20210113
  Serious: Yes (Other)
  Sender: FDA-Public Use
  Company Number: US-PFIZER INC-2020375591

PATIENT
  Age: 3 Year
  Sex: Male
  Weight: 14.3 kg

DRUGS (7)
  1. CHLORPROMAZINE. [Suspect]
     Active Substance: CHLORPROMAZINE
     Indication: SEDATIVE THERAPY
  2. MEPERIDINE HCL [Suspect]
     Active Substance: MEPERIDINE HYDROCHLORIDE
     Indication: SEDATIVE THERAPY
  3. VALIUM [Concomitant]
     Active Substance: DIAZEPAM
     Dosage: 1.5 MG (OVER THE NEXT TEN MINUTES)
     Route: 042
  4. PROMETHAZINE [Suspect]
     Active Substance: PROMETHAZINE HYDROCHLORIDE
     Indication: CATHETERISATION CARDIAC
     Dosage: 6.25 MG(1.1 ML OF CARDIAC COCKTAIL INTRAMUSCULARLY)
     Route: 030
  5. MEPERIDINE HCL [Suspect]
     Active Substance: MEPERIDINE HYDROCHLORIDE
     Indication: CATHETERISATION CARDIAC
     Dosage: 25 MG(1.1 ML OF CARDIAC COCKTAIL INTRAMUSCULARLY)
     Route: 030
  6. CHLORPROMAZINE. [Suspect]
     Active Substance: CHLORPROMAZINE
     Indication: CATHETERISATION CARDIAC
     Dosage: 6.25 MG/ML (CARDIAC COCKTAIL INTRAMUSCULARLY)
     Route: 030
  7. VALIUM [Concomitant]
     Active Substance: DIAZEPAM
     Indication: CATHETERISATION CARDIAC
     Dosage: 1 MG INTRAVENOUS (SLOW PUSH)
     Route: 042

REACTIONS (4)
  - Unresponsive to stimuli [Recovered/Resolved]
  - Kussmaul respiration [Recovered/Resolved]
  - Decorticate posture [Recovered/Resolved]
  - Nuchal rigidity [Recovered/Resolved]
